FAERS Safety Report 8547916-2 (Version None)
Quarter: 2012Q3

REPORT INFORMATION
  Report Type: 
  Country: None (occurrence: None)
  Receive Date: 20120728
  Receipt Date: 20120723
  Transmission Date: 20120928
  Serious: Yes (Hospitalization, Other)
  Sender: FDA-Public Use
  Company Number: US-009507513-1207USA009849

PATIENT

DRUGS (7)
  1. VYTORIN [Suspect]
     Dosage: 1 DF, QD
     Route: 048
  2. ATORVASTATIN [Suspect]
     Dosage: 1 DF, QD
     Route: 048
  3. PANTOPRAZOLE SODIUM [Concomitant]
     Dosage: 1 DF, QD
     Route: 048
  4. MIRTAZAPINE [Suspect]
     Dosage: 30 MG, QD
     Route: 048
  5. ENALAPRIL MALEATE [Suspect]
     Dosage: 10 MG, QD
     Route: 048
  6. ALLOPURINOL [Suspect]
     Dosage: 300 MG, QD
     Route: 048
  7. ASPIRIN [Concomitant]
     Dosage: 75 MG, QD
     Route: 048

REACTIONS (3)
  - BLOOD CREATINE PHOSPHOKINASE [None]
  - CONDITION AGGRAVATED [None]
  - PARAESTHESIA [None]
